FAERS Safety Report 5511989-1 (Version None)
Quarter: 2007Q4

REPORT INFORMATION
  Report Type: 
  Country: None (occurrence: None)
  Receive Date: 20071109
  Receipt Date: 20071030
  Transmission Date: 20080405
  Serious: Yes (Death, Hospitalization, Other)
  Sender: FDA-Public Use
  Company Number: BE-MERCK-0710BEL00020

PATIENT
  Age: 52 Year
  Sex: Male

DRUGS (19)
  1. CANCIDAS [Suspect]
     Indication: BRONCHOPULMONARY ASPERGILLOSIS
     Route: 042
  2. CANCIDAS [Suspect]
     Route: 042
  3. CANCIDAS [Suspect]
     Route: 042
  4. CANCIDAS [Suspect]
     Route: 042
  5. CANCIDAS [Suspect]
     Indication: ENDOCARDITIS
     Route: 042
  6. CANCIDAS [Suspect]
     Route: 042
  7. CANCIDAS [Suspect]
     Route: 042
  8. CANCIDAS [Suspect]
     Route: 042
  9. BASILIXIMAB [Concomitant]
     Indication: PROPHYLAXIS
     Route: 065
  10. BASILIXIMAB [Concomitant]
     Indication: TRANSPLANT
     Route: 041
  11. METHYLPREDNISOLONE [Concomitant]
     Indication: TRANSPLANT
     Route: 041
  12. METHYLPREDNISOLONE [Concomitant]
     Route: 041
  13. TACROLIMUS [Concomitant]
     Indication: TRANSPLANT
     Route: 047
  14. MYCOPHENOLATE MOFETIL [Concomitant]
     Indication: TRANSPLANT
     Route: 048
  15. ANTILYMPHOCYTE IMMUNOGLOBULIN [Concomitant]
     Indication: TRANSPLANT REJECTION
     Route: 065
  16. PIPERACILLIN SODIUM AND TAZOBACTAM SODIUM [Concomitant]
     Indication: SEPTIC SHOCK
     Route: 042
  17. VORICONAZOLE [Concomitant]
     Indication: BRONCHOPULMONARY ASPERGILLOSIS
     Route: 048
  18. ITRACONAZOLE [Concomitant]
     Indication: BRONCHOPULMONARY ASPERGILLOSIS
     Route: 048
  19. MEROPENEM [Concomitant]
     Indication: EVIDENCE BASED TREATMENT
     Route: 065

REACTIONS (3)
  - CARDIAC FAILURE [None]
  - HAEMOPTYSIS [None]
  - NEUROPATHY [None]
